FAERS Safety Report 6122348-5 (Version None)
Quarter: 2009Q1

REPORT INFORMATION
  Report Type: 
  Country: None (occurrence: None)
  Receive Date: 20090318
  Receipt Date: 20090311
  Transmission Date: 20090719
  Serious: Yes (Other)
  Sender: FDA-Public Use
  Company Number: US-ASTRAZENECA-2009UW06392

PATIENT
  Age: 56 Year
  Sex: Female
  Weight: 76.2 kg

DRUGS (2)
  1. CRESTOR [Suspect]
     Route: 048
     Dates: start: 20081101, end: 20090101
  2. CRESTOR [Suspect]
     Dosage: 1/2 OF A 10 MG TABLET
     Route: 048
     Dates: start: 20090101, end: 20090302

REACTIONS (3)
  - CYSTITIS [None]
  - PYREXIA [None]
  - URINARY INCONTINENCE [None]
